FAERS Safety Report 9691288 (Version 1)
Quarter: 2013Q4

REPORT INFORMATION
  Report Type: Spontaneous
  Country: US (occurrence: US)
  Receive Date: 20131115
  Receipt Date: 20131115
  Transmission Date: 20140711
  Serious: Yes (Hospitalization)
  Sender: FDA-Public Use
  Company Number: US-BAYER-2013-138086

PATIENT
  Age: 39 Year
  Sex: Female
  Weight: 60.77 kg

DRUGS (6)
  1. YAZ [Suspect]
     Indication: CONTRACEPTION
  2. GIANVI [Suspect]
  3. EPIDUO [Concomitant]
     Dosage: UNK
     Route: 061
     Dates: start: 20110720
  4. LORAZEPAM [Concomitant]
     Dosage: 1 MG, UNK
     Route: 048
     Dates: start: 20110723
  5. ZYRTEC [Concomitant]
     Dosage: 10 MG, UNK
     Route: 048
  6. LAMICTAL [Concomitant]
     Dosage: 25 MG, BID
     Route: 048

REACTIONS (1)
  - Pulmonary embolism [None]
